FAERS Safety Report 13429003 (Version 1)
Quarter: 2017Q2

REPORT INFORMATION
  Report Type: Spontaneous
  Country: US (occurrence: US)
  Receive Date: 20170411
  Receipt Date: 20170411
  Transmission Date: 20170830
  Serious: No
  Sender: FDA-Public Use
  Company Number: US-LUNDBECK-DKLU2027952

PATIENT
  Sex: Male

DRUGS (1)
  1. SABRIL [Suspect]
     Active Substance: VIGABATRIN
     Indication: INFANTILE SPASMS
     Route: 048
     Dates: start: 20170203

REACTIONS (4)
  - Confusional state [Recovered/Resolved]
  - Discomfort [Recovered/Resolved]
  - Crying [Recovered/Resolved]
  - Poor quality sleep [Recovered/Resolved]
